FAERS Safety Report 9507720 (Version 2)
Quarter: 2013Q3

REPORT INFORMATION
  Report Type: Not Available
  Country: FR (occurrence: FR)
  Receive Date: 20130909
  Receipt Date: 20130930
  Transmission Date: 20140515
  Serious: Yes (Life-Threatening, Hospitalization)
  Sender: FDA-Public Use
  Company Number: FR-NAPPMUNDI-GBR-2013-0015538

PATIENT
  Age: 56 Year
  Sex: Male

DRUGS (7)
  1. OXYNORM [Suspect]
     Indication: PRODUCT USED FOR UNKNOWN INDICATION
     Dosage: UNK
     Dates: start: 20130712, end: 20130727
  2. VFEND [Suspect]
     Indication: PROPHYLAXIS
     Dosage: 300 MG, Q12H
     Route: 042
     Dates: start: 20130718, end: 20130727
  3. PLITICAN [Suspect]
     Indication: PRODUCT USED FOR UNKNOWN INDICATION
     Dosage: 3 DF, DAILY
     Dates: start: 20130712, end: 20130726
  4. ZOPICLONE [Suspect]
     Indication: PRODUCT USED FOR UNKNOWN INDICATION
     Dosage: 3.75 MG, DAILY
     Route: 048
     Dates: start: 20130709, end: 20130726
  5. VALACICLOVIR [Suspect]
     Indication: PRODUCT USED FOR UNKNOWN INDICATION
     Dosage: 500 MG, BID
     Route: 048
     Dates: start: 20130709, end: 20130726
  6. PIPERACILLINE [Suspect]
     Indication: PRODUCT USED FOR UNKNOWN INDICATION
     Dosage: UNK
     Route: 042
     Dates: start: 20130712, end: 20130731
  7. ALPRAZOLAM [Suspect]
     Indication: PRODUCT USED FOR UNKNOWN INDICATION
     Dosage: 3.75 MG, DAILY
     Route: 048
     Dates: end: 20130726

REACTIONS (13)
  - Neurological symptom [Recovering/Resolving]
  - Chest X-ray abnormal [Unknown]
  - Breath sounds abnormal [Unknown]
  - Loss of consciousness [Unknown]
  - Neurotoxicity [Unknown]
  - Psychomotor retardation [Unknown]
  - Urinary incontinence [Unknown]
  - Pyrexia [Unknown]
  - Nausea [Unknown]
  - Hallucination [Unknown]
  - Headache [Unknown]
  - Confusional state [Unknown]
  - Convulsion [Unknown]
